FAERS Safety Report 7164211 (Version 11)
Quarter: 2012Q4

REPORT INFORMATION
  Report Type: Report from Study
  Country: US (occurrence: US)
  Receive Date: 20091104
  Receipt Date: 20121029
  Transmission Date: 20130627
  Serious: Yes (Hospitalization, Other)
  Sender: FDA-Public Use
  Company Number: US-JNJFOC-20091007189

PATIENT
  Age: 15 Year
  Sex: Male
  Weight: 52.89 kg

DRUGS (9)
  1. INFLIXIMAB [Suspect]
     Indication: INFLAMMATORY BOWEL DISEASE
     Route: 042
     Dates: start: 20081222, end: 20090814
  2. ZOSYN [Suspect]
     Indication: PRODUCT USED FOR UNKNOWN INDICATION
     Dates: end: 20091026
  3. FLUCONAZOLE [Suspect]
     Indication: PRODUCT USED FOR UNKNOWN INDICATION
     Dates: end: 200910
  4. 5-AMINOSALICYLIC ACID [Concomitant]
     Route: 048
  5. PREDNISONE [Concomitant]
  6. LEVSIN [Concomitant]
  7. MULTIPLE VITAMIN [Concomitant]
  8. SLOW FE [Concomitant]
  9. OMEPRAZOLE [Concomitant]

REACTIONS (11)
  - Retroperitoneal abscess [Recovered/Resolved with Sequelae]
  - Candidiasis [Recovered/Resolved]
  - Enterococcal infection [Unknown]
  - Lactobacillus infection [Unknown]
  - Neutropenia [Recovered/Resolved]
  - Pyrexia [Recovered/Resolved]
  - Weight decreased [Unknown]
  - Osteomyelitis [Recovered/Resolved]
  - Thrombocytopenia [Recovering/Resolving]
  - Dehydration [Unknown]
  - Hepatic enzyme increased [Recovering/Resolving]
